FAERS Safety Report 22876707 (Version 5)
Quarter: 2023Q4

REPORT INFORMATION
  Report Type: Report from Study
  Country: FR (occurrence: FR)
  Receive Date: 20230829
  Receipt Date: 20231127
  Transmission Date: 20240110
  Serious: Yes (Hospitalization)
  Sender: FDA-Public Use
  Company Number: FR-SA-SAC20230810000718

PATIENT
  Age: 63 Year
  Sex: Male
  Weight: 83 kg

DRUGS (12)
  1. ISATUXIMAB [Suspect]
     Active Substance: ISATUXIMAB
     Indication: Plasma cell myeloma
     Dosage: 780 MG
     Route: 041
     Dates: start: 20230711, end: 20230711
  2. ISATUXIMAB [Suspect]
     Active Substance: ISATUXIMAB
     Dosage: 850 MG; 1/SEM
     Route: 041
     Dates: start: 20230718, end: 20230718
  3. ISATUXIMAB [Suspect]
     Active Substance: ISATUXIMAB
     Dosage: 780 MG
     Route: 041
     Dates: start: 20230809, end: 20230809
  4. CARFILZOMIB [Suspect]
     Active Substance: CARFILZOMIB
     Indication: Plasma cell myeloma
     Dosage: 108 MG
     Route: 065
     Dates: start: 20230711, end: 20230711
  5. CARFILZOMIB [Suspect]
     Active Substance: CARFILZOMIB
     Dosage: 114MG; 1/SEM
     Route: 065
     Dates: start: 20230718, end: 20230718
  6. CARFILZOMIB [Suspect]
     Active Substance: CARFILZOMIB
     Dosage: 108 MG
     Route: 065
     Dates: start: 20230809, end: 20230809
  7. LENALIDOMIDE [Suspect]
     Active Substance: LENALIDOMIDE
     Indication: Plasma cell myeloma
     Dosage: 25 MG
     Route: 065
     Dates: start: 20230711, end: 20230711
  8. LENALIDOMIDE [Suspect]
     Active Substance: LENALIDOMIDE
     Dosage: 25 MG, QD
     Route: 065
     Dates: start: 20230731, end: 20230731
  9. LENALIDOMIDE [Suspect]
     Active Substance: LENALIDOMIDE
     Dosage: 25 MG
     Route: 065
     Dates: start: 20230809, end: 20230809
  10. DEXAMETHASONE [Suspect]
     Active Substance: DEXAMETHASONE
     Indication: Plasma cell myeloma
     Dosage: 40 MG
     Route: 065
     Dates: start: 20230711, end: 20230711
  11. DEXAMETHASONE [Suspect]
     Active Substance: DEXAMETHASONE
     Dosage: 40 MG; 1/SEM
     Route: 065
     Dates: start: 20230708, end: 20230718
  12. DEXAMETHASONE [Suspect]
     Active Substance: DEXAMETHASONE
     Dosage: 40 MG
     Route: 065
     Dates: start: 20230809, end: 20230809

REACTIONS (2)
  - General physical health deterioration [Recovered/Resolved]
  - General physical health deterioration [Recovered/Resolved]

NARRATIVE: CASE EVENT DATE: 20230723
